FAERS Safety Report 9285466 (Version 1)
Quarter: 2013Q2

REPORT INFORMATION
  Report Type: Spontaneous
  Country: US (occurrence: None)
  Receive Date: 20130510
  Receipt Date: 20130510
  Transmission Date: 20140414
  Serious: Yes (Death, Hospitalization)
  Sender: FDA-Public Use
  Company Number: None

PATIENT
  Age: 64 Year
  Sex: Male
  Weight: 137.9 kg

DRUGS (20)
  1. DIGOXIN [Suspect]
     Indication: CARDIAC FAILURE CONGESTIVE
     Dosage: 125MCG  MWF  PO?CHRONIC
     Route: 048
  2. DIGOXIN [Suspect]
     Indication: CARDIAC FAILURE CONGESTIVE
     Dosage: 250MCG  SSTTH   PO?CHRONIC
     Route: 048
  3. COUMADIN [Suspect]
     Dosage: 5MG  PO  TTH/  7.5MG  PO  SSMWF
     Route: 048
  4. LASIX [Concomitant]
  5. SINGULAIR [Concomitant]
  6. AVAPRO [Concomitant]
  7. LIPITOR [Concomitant]
  8. METFORMIN [Concomitant]
  9. ASPIRIN [Concomitant]
  10. ADVAIR [Concomitant]
  11. CLONIDINE [Concomitant]
  12. CARDIZEM [Concomitant]
  13. KCL [Concomitant]
  14. ZAROXOLYN [Concomitant]
  15. OMEPRAZOLE [Concomitant]
  16. DUONEBS [Concomitant]
  17. ALBUTEROL [Concomitant]
  18. ZOLOFT [Concomitant]
  19. FLOMAX [Concomitant]
  20. TYLENOL [Concomitant]

REACTIONS (6)
  - Toxicity to various agents [None]
  - Ventricular fibrillation [None]
  - Coagulopathy [None]
  - Renal failure [None]
  - Anaemia [None]
  - Hypoxic-ischaemic encephalopathy [None]
